FAERS Safety Report 8410569-8 (Version None)
Quarter: 2012Q2

REPORT INFORMATION
  Report Type: 
  Country: None (occurrence: None)
  Receive Date: 20120605
  Receipt Date: 20120604
  Transmission Date: 20120825
  Serious: Yes (Disabling, Other)
  Sender: FDA-Public Use
  Company Number: US-BAYER-200919080NA

PATIENT
  Age: 79 Year
  Sex: Male
  Weight: 68 kg

DRUGS (26)
  1. LIPITOR [Concomitant]
  2. MEGESTROL ACETATE [Concomitant]
  3. ASPIRIN [Concomitant]
  4. MAGNEVIST [Suspect]
     Indication: FISTULOGRAM
     Route: 042
     Dates: start: 20051121, end: 20051121
  5. TERAZOSIN HCL [Concomitant]
  6. RENA-VITE [ASCORBIC ACID,VITAMIN B NOS] [Concomitant]
  7. COLCHICINE [Concomitant]
  8. PHOSLO [Concomitant]
  9. LASIX [Concomitant]
  10. COUMADIN [Concomitant]
  11. ROCALTROL [Concomitant]
  12. ACETAMINOPHEN [Concomitant]
  13. MAGNEVIST [Suspect]
     Dates: start: 20060816, end: 20060816
  14. ATENOLOL [Concomitant]
  15. PREDNISONE [Concomitant]
  16. ASPIRIN [Concomitant]
  17. ISOSORBIDE MONONITRATE [Concomitant]
  18. NITROGLYCERIN [Concomitant]
  19. WARFARIN [Concomitant]
  20. ALLOPURINOL [Concomitant]
  21. MAGNEVIST [Suspect]
     Route: 042
     Dates: start: 20060416, end: 20060416
  22. PROCARDIA [Concomitant]
  23. PREDNISONE [Concomitant]
  24. ALLOPURINOL [Concomitant]
  25. NEPHRO-VITE [VITAMINS NOS] [Concomitant]
  26. METOPROLOL TARTRATE [Concomitant]

REACTIONS (23)
  - NEPHROGENIC SYSTEMIC FIBROSIS [None]
  - SKIN HYPERTROPHY [None]
  - PAIN IN EXTREMITY [None]
  - MUSCLE ATROPHY [None]
  - JOINT RANGE OF MOTION DECREASED [None]
  - ANXIETY [None]
  - EMOTIONAL DISTRESS [None]
  - SKIN INDURATION [None]
  - GENERAL PHYSICAL HEALTH DETERIORATION [None]
  - DEFORMITY [None]
  - SKIN TIGHTNESS [None]
  - OEDEMA [None]
  - SKIN FIBROSIS [None]
  - MUSCULOSKELETAL STIFFNESS [None]
  - MOBILITY DECREASED [None]
  - PAIN [None]
  - FATIGUE [None]
  - SCAR [None]
  - MUSCLE DISORDER [None]
  - FIBROSIS [None]
  - JOINT CONTRACTURE [None]
  - JOINT STIFFNESS [None]
  - QUALITY OF LIFE DECREASED [None]
